FAERS Safety Report 14010404 (Version 1)
Quarter: 2017Q3

REPORT INFORMATION
  Report Type: Spontaneous
  Country: CA (occurrence: CA)
  Receive Date: 20170926
  Receipt Date: 20170926
  Transmission Date: 20171128
  Serious: Yes (Other)
  Sender: FDA-Public Use
  Company Number: CA-ROCHE-1996911

PATIENT
  Age: 57 Year
  Sex: Female

DRUGS (4)
  1. XOLAIR [Suspect]
     Active Substance: OMALIZUMAB
     Dosage: 300 MG, UNK
     Route: 058
  2. DICLOFENAC [Suspect]
     Active Substance: DICLOFENAC
     Indication: PRODUCT USED FOR UNKNOWN INDICATION
     Route: 065
  3. REACTINE (CANADA) [Concomitant]
     Active Substance: CETIRIZINE HYDROCHLORIDE
     Indication: PRODUCT USED FOR UNKNOWN INDICATION
     Dosage: 20 MG, UNK
     Route: 065
  4. XOLAIR [Suspect]
     Active Substance: OMALIZUMAB
     Indication: CHRONIC SPONTANEOUS URTICARIA
     Route: 058

REACTIONS (11)
  - Musculoskeletal pain [Recovered/Resolved]
  - Urticaria [Recovered/Resolved]
  - Adnexa uteri pain [Recovered/Resolved]
  - Infected skin ulcer [Recovered/Resolved]
  - Papilloma [Recovered/Resolved]
  - Pneumonia [Recovered/Resolved]
  - Nasal congestion [Recovered/Resolved]
  - Palpitations [Recovered/Resolved]
  - Blood pressure systolic increased [Recovered/Resolved]
  - Hormone level abnormal [Recovered/Resolved]
  - Postmenopausal haemorrhage [Recovered/Resolved]
